FAERS Safety Report 6008857-8 (Version None)
Quarter: 2008Q4

REPORT INFORMATION
  Report Type: 
  Country: None (occurrence: None)
  Receive Date: 20081217
  Receipt Date: 20081217
  Transmission Date: 20090506
  Serious: Yes (Hospitalization)
  Sender: FDA-Public Use
  Company Number: None

PATIENT
  Sex: Female
  Weight: 91 kg

DRUGS (11)
  1. CYCLOPHOSPHAMIDE [Suspect]
     Dosage: 1188 MG
  2. DOXORUBICIN HYDROCHLORIDE [Suspect]
     Dosage: 119 MG
  3. DEXAMETHASONE [Concomitant]
  4. GLIPIZIDE [Concomitant]
  5. INSULIN [Concomitant]
  6. JANUVIA [Concomitant]
  7. LASIX [Concomitant]
  8. NEULASTA [Concomitant]
  9. PRINIVIL [Concomitant]
  10. SYNTHROID [Concomitant]
  11. ZOLOFT [Concomitant]

REACTIONS (6)
  - ASTHENIA [None]
  - COUGH [None]
  - PYREXIA [None]
  - RHINORRHOEA [None]
  - SEPSIS [None]
  - WHITE BLOOD CELL COUNT DECREASED [None]
